FAERS Safety Report 5343746-3 (Version None)
Quarter: 2007Q2

REPORT INFORMATION
  Report Type: 
  Country: None (occurrence: None)
  Receive Date: 20070531
  Receipt Date: 20070531
  Transmission Date: 20071010
  Serious: No
  Sender: FDA-Public Use
  Company Number: None

PATIENT
  Age: 50 Year
  Sex: Female
  Weight: 90.7194 kg

DRUGS (1)
  1. AMPICILLIN [Suspect]
     Indication: MITRAL VALVE PROLAPSE
     Dosage: 2 GRAM IV X 1
     Route: 042
     Dates: start: 20070424

REACTIONS (2)
  - ERYTHEMA [None]
  - PRURITUS [None]
